FAERS Safety Report 5691809-5 (Version None)
Quarter: 2008Q2

REPORT INFORMATION
  Report Type: 
  Country: None (occurrence: None)
  Receive Date: 20080401
  Receipt Date: 20080401
  Transmission Date: 20081010
  Serious: No
  Sender: FDA-Public Use
  Company Number: None

PATIENT
  Age: 57 Year
  Sex: Female
  Weight: 75.7507 kg

DRUGS (4)
  1. ATROPINE [Suspect]
     Indication: OPHTHALMOLOGICAL EXAMINATION
     Dosage: 5 DROPS ONCE OPHTHALMIC
     Route: 047
     Dates: start: 20040428, end: 20040428
  2. TROPICAMIDE [Suspect]
     Indication: CORRECTIVE LENS USER
     Dosage: 2 DROPS OF ONE , AND 2 ANOTHER ONCE OPHTHALMIC
     Route: 047
     Dates: start: 20080107, end: 20080107
  3. SCOPOLAMINE [Suspect]
  4. CYCLOGYL [Suspect]

REACTIONS (25)
  - BLOOD CHOLESTEROL INCREASED [None]
  - BLOOD TRIGLYCERIDES INCREASED [None]
  - DISORIENTATION [None]
  - DRUG TOXICITY [None]
  - DRY MOUTH [None]
  - DRY THROAT [None]
  - EYE INFECTION [None]
  - HEADACHE [None]
  - HYPERACUSIS [None]
  - HYPOAESTHESIA [None]
  - INFLUENZA [None]
  - LOW DENSITY LIPOPROTEIN INCREASED [None]
  - MALAISE [None]
  - NAUSEA [None]
  - NERVOUS SYSTEM DISORDER [None]
  - PARAESTHESIA [None]
  - PHOTOPHOBIA [None]
  - PHOTOPSIA [None]
  - RHINITIS [None]
  - SENSORY DISTURBANCE [None]
  - SINUSITIS [None]
  - SWELLING [None]
  - THERAPEUTIC AGENT TOXICITY [None]
  - TINNITUS [None]
  - VOMITING [None]
